FAERS Safety Report 6267512-X (Version None)
Quarter: 2009Q3

REPORT INFORMATION
  Report Type: 
  Country: None (occurrence: None)
  Receive Date: 20090714
  Receipt Date: 20090706
  Transmission Date: 20100115
  Serious: Yes (Disabling)
  Sender: FDA-Public Use
  Company Number: US-MERCK-0811USA03806

PATIENT
  Age: 78 Year
  Sex: Female

DRUGS (2)
  1. FOSAMAX [Suspect]
     Indication: OSTEOPENIA
     Route: 048
     Dates: start: 20010301, end: 20070901
  2. FOSAMAX PLUS D [Suspect]
     Indication: OSTEOPENIA
     Route: 048

REACTIONS (2)
  - JAW DISORDER [None]
  - OSTEONECROSIS [None]
